FAERS Safety Report 12433146 (Version 1)
Quarter: 2016Q2

REPORT INFORMATION
  Report Type: Spontaneous
  Country: US (occurrence: US)
  Receive Date: 20160603
  Receipt Date: 20160603
  Transmission Date: 20160815
  Serious: Yes (Other)
  Sender: FDA-Public Use
  Company Number: US-TEVA-663037USA

PATIENT
  Sex: Male

DRUGS (1)
  1. METFORMIN [Suspect]
     Active Substance: METFORMIN HYDROCHLORIDE
     Indication: ACCIDENTAL EXPOSURE TO PRODUCT
     Route: 048

REACTIONS (5)
  - Arrhythmia [Recovering/Resolving]
  - Coma [Recovering/Resolving]
  - Accidental exposure to product [Recovering/Resolving]
  - Agitation [Recovering/Resolving]
  - Metabolic acidosis [Recovering/Resolving]
